FAERS Safety Report 19982999 (Version 1)
Quarter: 2021Q4

REPORT INFORMATION
  Report Type: Spontaneous
  Country: PT (occurrence: PT)
  Receive Date: 20211021
  Receipt Date: 20211021
  Transmission Date: 20220303
  Serious: Yes (Other)
  Sender: FDA-Public Use
  Company Number: PT-LUNDBECK-DKLU3039677

PATIENT
  Sex: Male

DRUGS (2)
  1. BRINTELLIX [Suspect]
     Active Substance: VORTIOXETINE HYDROBROMIDE
     Indication: Fatigue
     Dosage: 5 MILLIGRAM, QD
     Route: 048
     Dates: start: 20210805
  2. MIRTAZAPINE [Concomitant]
     Active Substance: MIRTAZAPINE
     Indication: Product used for unknown indication
     Dosage: UNK
     Route: 065

REACTIONS (9)
  - Urinary tract obstruction [Unknown]
  - Alopecia [Not Recovered/Not Resolved]
  - Nightmare [Unknown]
  - Hypoaesthesia oral [Unknown]
  - Asthenopia [Unknown]
  - Product use in unapproved indication [Unknown]
  - Dry mouth [Unknown]
  - Dizziness [Unknown]
  - Nausea [Recovering/Resolving]

NARRATIVE: CASE EVENT DATE: 20210805
